FAERS Safety Report 20763441 (Version 1)
Quarter: 2022Q2

REPORT INFORMATION
  Report Type: Spontaneous
  Country: US (occurrence: US)
  Receive Date: 20220428
  Receipt Date: 20220428
  Transmission Date: 20220720
  Serious: No
  Sender: FDA-Public Use
  Company Number: US-PFIZER INC-202200495246

PATIENT
  Age: 58 Year
  Sex: Female

DRUGS (1)
  1. IBRANCE [Suspect]
     Active Substance: PALBOCICLIB
     Dosage: UNK, TAKING AFTER EATING
     Dates: start: 20211026

REACTIONS (3)
  - Product dose omission in error [Unknown]
  - Product administration error [Unknown]
  - Nausea [Not Recovered/Not Resolved]
